FAERS Safety Report 5612777-8 (Version None)
Quarter: 2008Q1

REPORT INFORMATION
  Report Type: 
  Country: None (occurrence: None)
  Receive Date: 20080204
  Receipt Date: 20080125
  Transmission Date: 20080703
  Serious: Yes (Other)
  Sender: FDA-Public Use
  Company Number: MX-ELI_LILLY_AND_COMPANY-MX200801003366

PATIENT
  Age: 45 Year
  Sex: Male

DRUGS (2)
  1. CIALIS [Suspect]
     Indication: ERECTILE DYSFUNCTION
     Dosage: 20 MG, OTHER
     Route: 048
     Dates: start: 20050101
  2. CIALIS [Suspect]
     Dosage: 10 MG, UNKNOWN
     Route: 048
     Dates: start: 20080115, end: 20080115

REACTIONS (4)
  - BLINDNESS [None]
  - COLOUR BLINDNESS [None]
  - DEPENDENCE [None]
  - VISUAL DISTURBANCE [None]
